FAERS Safety Report 7240751 (Version 6)
Quarter: 2013Q4

REPORT INFORMATION
  Report Type: Spontaneous
  Country: US (occurrence: US)
  Receive Date: 20100108
  Receipt Date: 20131004
  Transmission Date: 20140711
  Serious: Yes (Hospitalization, Other)
  Sender: FDA-Public Use
  Company Number: US-PFIZER INC-2010000133

PATIENT
  Age: 63 Year
  Sex: Female
  Weight: 87.98 kg

DRUGS (15)
  1. QUINAPRIL HCL [Suspect]
     Indication: HYPERTENSION
     Dosage: 10 MG, DAILY
     Route: 048
     Dates: start: 20090731, end: 20091213
  2. QUINAPRIL HCL [Suspect]
     Indication: CORONARY ARTERY DISEASE
  3. QUINAPRIL HCL [Suspect]
     Indication: MYOCARDIAL INFARCTION
  4. SIMVASTATIN [Suspect]
     Indication: CARDIAC DISORDER
     Dosage: UNK
  5. LOPRESSOR [Suspect]
     Indication: HYPERTENSION
     Dosage: 25 MG, 2X/DAY
     Dates: start: 200908
  6. ZETIA [Concomitant]
     Dosage: UNK
     Dates: start: 200908, end: 200908
  7. PLAVIX [Concomitant]
     Dosage: 75 MG, DAILY
     Dates: start: 2010
  8. ACETYLSALICYLIC ACID [Concomitant]
     Dosage: 81 MG, UNK
  9. PROVERA [Concomitant]
     Dosage: 5 MG, UNK
  10. PROVERA [Concomitant]
     Dosage: 10 MG, DAILY
  11. ALPRAZOLAM [Concomitant]
     Dosage: 0.25 MG, 2X/DAY
  12. ESTRADIOL [Concomitant]
     Dosage: UNK
  13. COVERA-HS [Concomitant]
     Dosage: 180 MG, UNK
  14. XANAX [Concomitant]
     Dosage: 0.25 MG, AS NEEDED
  15. CALAN [Concomitant]
     Dosage: UNK

REACTIONS (27)
  - Coronary arterial stent insertion [Not Recovered/Not Resolved]
  - Lip swelling [Recovered/Resolved]
  - Feeling abnormal [Not Recovered/Not Resolved]
  - Paraesthesia [Unknown]
  - Hypoaesthesia [Unknown]
  - Aphagia [Unknown]
  - Weight increased [Unknown]
  - Weight decreased [Recovered/Resolved]
  - Peripheral nerve injury [Recovering/Resolving]
  - Flushing [Not Recovered/Not Resolved]
  - Red blood cell count increased [Not Recovered/Not Resolved]
  - Blood magnesium increased [Not Recovered/Not Resolved]
  - High density lipoprotein decreased [Not Recovered/Not Resolved]
  - Total cholesterol/HDL ratio decreased [Not Recovered/Not Resolved]
  - Low density lipoprotein increased [Not Recovered/Not Resolved]
  - Hyperhidrosis [Not Recovered/Not Resolved]
  - Malaise [Unknown]
  - Swelling face [Unknown]
  - Eye swelling [Unknown]
  - Asthenia [Recovering/Resolving]
  - Decreased appetite [Recovering/Resolving]
  - Dysgeusia [Unknown]
  - Gait disturbance [Unknown]
  - Muscular weakness [Unknown]
  - Myalgia [Recovering/Resolving]
  - Nausea [Recovering/Resolving]
  - Drug intolerance [Unknown]
